FAERS Safety Report 8309034-8 (Version None)
Quarter: 2012Q2

REPORT INFORMATION
  Report Type: 
  Country: None (occurrence: None)
  Receive Date: 20120424
  Receipt Date: 20120417
  Transmission Date: 20120825
  Serious: Yes (Other)
  Sender: FDA-Public Use
  Company Number: ZA-ELI_LILLY_AND_COMPANY-ZA201204006487

PATIENT
  Sex: Female

DRUGS (2)
  1. HUMALOG MIX 75/25 [Suspect]
     Indication: GESTATIONAL DIABETES
     Dosage: 10 U, EACH MORNING
     Route: 058
     Dates: start: 20120417
  2. HUMALOG MIX 75/25 [Suspect]
     Dosage: 5 U, EACH EVENING
     Route: 058
     Dates: start: 20120417

REACTIONS (2)
  - ABORTION SPONTANEOUS [None]
  - MATERNAL EXPOSURE DURING PREGNANCY [None]
